FAERS Safety Report 7749007-7 (Version None)
Quarter: 2011Q3

REPORT INFORMATION
  Report Type: 
  Country: None (occurrence: None)
  Receive Date: 20110909
  Receipt Date: 20110831
  Transmission Date: 20111222
  Serious: Yes (Hospitalization)
  Sender: FDA-Public Use
  Company Number: 2011001379

PATIENT
  Age: 68 Year
  Sex: Male

DRUGS (2)
  1. TARCEVA [Suspect]
     Indication: LUNG NEOPLASM MALIGNANT
     Dosage: 150; 100 MG, UID/QD, ORAL
     Route: 048
     Dates: start: 20110405
  2. TARCEVA [Suspect]
     Indication: LUNG NEOPLASM MALIGNANT
     Dosage: 150; 100 MG, UID/QD, ORAL
     Route: 048
     Dates: start: 20110311

REACTIONS (4)
  - RASH [None]
  - DIARRHOEA [None]
  - SYNCOPE [None]
  - ARRHYTHMIA [None]
